FAERS Safety Report 18734518 (Version 2)
Quarter: 2021Q1

REPORT INFORMATION
  Report Type: Report from Study
  Country: US (occurrence: US)
  Receive Date: 20210113
  Receipt Date: 20210119
  Transmission Date: 20210419
  Serious: Yes (Hospitalization)
  Sender: FDA-Public Use
  Company Number: US-EXELIXIS-CABO-20035617

PATIENT
  Age: 11 Year
  Sex: Female
  Weight: 47 kg

DRUGS (8)
  1. OXYCODONE [Concomitant]
     Active Substance: OXYCODONE
  2. CABOMETYX [Suspect]
     Active Substance: CABOZANTINIB S-MALATE
     Indication: OSTEOSARCOMA
     Dosage: 60 MG, QD
     Route: 048
     Dates: start: 202011, end: 20201230
  3. CHOLECALCIFEROL [Concomitant]
     Active Substance: CHOLECALCIFEROL
  4. SENNA [Concomitant]
     Active Substance: SENNA LEAF\SENNOSIDES\SENNOSIDES A AND B
  5. BACTRIM [Concomitant]
     Active Substance: SULFAMETHOXAZOLE\TRIMETHOPRIM
  6. VITAMIN D [Concomitant]
     Active Substance: VITAMIN D NOS
  7. GABAPENTIN. [Concomitant]
     Active Substance: GABAPENTIN
  8. MIRALAX [Concomitant]
     Active Substance: POLYETHYLENE GLYCOL 3350

REACTIONS (6)
  - Pneumothorax [Recovered/Resolved]
  - Vomiting [Unknown]
  - Oropharyngeal pain [Unknown]
  - Off label use [Unknown]
  - Productive cough [Unknown]
  - Nausea [Unknown]

NARRATIVE: CASE EVENT DATE: 20201230
